FAERS Safety Report 5579147-2 (Version None)
Quarter: 2008Q1

REPORT INFORMATION
  Report Type: 
  Country: None (occurrence: None)
  Receive Date: 20080102
  Receipt Date: 20071220
  Transmission Date: 20080703
  Serious: Yes (Hospitalization)
  Sender: FDA-Public Use
  Company Number: FR-ROCHE-538278

PATIENT
  Age: 50 Year
  Sex: Female

DRUGS (13)
  1. RIVOTRIL [Suspect]
     Indication: DRUG USE FOR UNKNOWN INDICATION
     Dosage: DOSAGE: 10 DROP IN MORNING; 10 DROPS AT LUNCH AND 20 DROPS IN EVENING
     Route: 048
     Dates: start: 20070913, end: 20070917
  2. RIVOTRIL [Suspect]
     Dosage: DOSAGE: 10 DROP IN MORNING; 10 DROPS AT LUNCH AND 20 DROPS IN EVENING
     Route: 048
     Dates: start: 20070918
  3. TERCIAN [Suspect]
     Indication: DRUG USE FOR UNKNOWN INDICATION
     Route: 048
     Dates: start: 20070913, end: 20070917
  4. RISPERDAL [Suspect]
     Indication: DRUG USE FOR UNKNOWN INDICATION
     Dosage: TAKEN IN THE EVENING
     Route: 048
     Dates: start: 20070913, end: 20070917
  5. GUTRON [Suspect]
     Indication: DRUG USE FOR UNKNOWN INDICATION
     Route: 048
     Dates: start: 20070913, end: 20070917
  6. GUTRON [Suspect]
     Route: 048
     Dates: start: 20070918
  7. ZOPICLONE [Suspect]
     Indication: DRUG USE FOR UNKNOWN INDICATION
     Dosage: TAKEN IN THE EVENING
     Route: 048
     Dates: start: 20070913, end: 20070917
  8. ZOPICLONE [Suspect]
     Dosage: TAKEN IN THE EVENING
     Route: 048
     Dates: start: 20070918
  9. SULFARLEM [Suspect]
     Indication: DRUG USE FOR UNKNOWN INDICATION
     Dosage: 2 TABLETS IN MORNING, AFTERNOON AND EVENING
     Route: 048
     Dates: start: 20070913, end: 20070917
  10. SULFARLEM [Suspect]
     Route: 048
  11. LEPTICUR [Suspect]
     Indication: DRUG USE FOR UNKNOWN INDICATION
     Route: 048
     Dates: start: 20070913, end: 20070917
  12. AERIUS [Suspect]
     Indication: BRONCHIECTASIS
     Route: 048
     Dates: start: 20070914, end: 20070917
  13. ZITHROMAX [Concomitant]
     Dosage: TAKEN IN THE EVENING; DRUG NAME REPORTED ZYTHROMAX

REACTIONS (3)
  - DYSPHAGIA [None]
  - FUNGAL INFECTION [None]
  - LIP OEDEMA [None]
